FAERS Safety Report 18958288 (Version 1)
Quarter: 2021Q1

REPORT INFORMATION
  Report Type: Spontaneous
  Country: US (occurrence: US)
  Receive Date: 20210302
  Receipt Date: 20210302
  Transmission Date: 20210420
  Serious: No
  Sender: FDA-Public Use
  Company Number: US-AMGEN-USASP2021029756

PATIENT
  Age: 75 Year
  Sex: Female

DRUGS (1)
  1. PROLIA [Suspect]
     Active Substance: DENOSUMAB
     Indication: OSTEOPOROSIS POSTMENOPAUSAL
     Dosage: 60 MILLIGRAM
     Route: 065
     Dates: start: 2018

REACTIONS (6)
  - Hair disorder [Unknown]
  - Lip swelling [Unknown]
  - Oral herpes [Unknown]
  - Feeling abnormal [Unknown]
  - Burning sensation [Unknown]
  - Pruritus [Unknown]

NARRATIVE: CASE EVENT DATE: 2018
